FAERS Safety Report 7384058-6 (Version None)
Quarter: 2011Q1

REPORT INFORMATION
  Report Type: 
  Country: None (occurrence: None)
  Receive Date: 20110330
  Receipt Date: 20110318
  Transmission Date: 20110831
  Serious: Yes (Hospitalization)
  Sender: FDA-Public Use
  Company Number: A0716228A

PATIENT
  Age: 61 Year
  Sex: Female
  Weight: 106.8 kg

DRUGS (4)
  1. HYDROCODONE BITARTRATE [Concomitant]
  2. AVANDIA [Suspect]
     Dosage: 2MG TWICE PER DAY
     Route: 048
     Dates: start: 20030101, end: 20070101
  3. LASIX [Concomitant]
     Dates: start: 19980101
  4. VICODIN [Concomitant]

REACTIONS (3)
  - CARDIAC FAILURE CONGESTIVE [None]
  - LOSS OF CONSCIOUSNESS [None]
  - UPPER LIMB FRACTURE [None]
